FAERS Safety Report 13603828 (Version 14)
Quarter: 2018Q3

REPORT INFORMATION
  Report Type: Spontaneous
  Country: CA (occurrence: CA)
  Receive Date: 20170602
  Receipt Date: 20180813
  Transmission Date: 20181010
  Serious: Yes (Other)
  Sender: FDA-Public Use
  Company Number: CA-TEVA-773443ACC

PATIENT
  Age: 44 Year
  Sex: Female
  Weight: 63.06 kg

DRUGS (39)
  1. ALENDRONIC ACID [Suspect]
     Active Substance: ALENDRONIC ACID
     Indication: PRODUCT USED FOR UNKNOWN INDICATION
     Route: 065
  2. MELOXICAM. [Suspect]
     Active Substance: MELOXICAM
     Indication: PRODUCT USED FOR UNKNOWN INDICATION
     Route: 065
  3. NAPROXEN. [Suspect]
     Active Substance: NAPROXEN
     Dosage: 1000 MILLIGRAM DAILY;
     Route: 048
  4. XELJANZ [Suspect]
     Active Substance: TOFACITINIB CITRATE
     Indication: RHEUMATOID ARTHRITIS
     Dosage: 10 MILLIGRAM DAILY;
     Route: 048
  5. PANTOPRAZOLE [Suspect]
     Active Substance: PANTOPRAZOLE
     Indication: PRODUCT USED FOR UNKNOWN INDICATION
     Route: 048
  6. APO?NAPROXEN [Suspect]
     Active Substance: NAPROXEN
     Indication: PRODUCT USED FOR UNKNOWN INDICATION
     Dosage: 1000  DAILY;
     Route: 048
  7. PLAQUENIL [Concomitant]
     Active Substance: HYDROXYCHLOROQUINE SULFATE
  8. NAPROXEN. [Suspect]
     Active Substance: NAPROXEN
     Indication: PRODUCT USED FOR UNKNOWN INDICATION
     Dosage: 1000 MILLIGRAM DAILY;
     Route: 048
  9. LYRICA [Suspect]
     Active Substance: PREGABALIN
     Indication: RHEUMATOID ARTHRITIS
     Dosage: 300 MILLIGRAM DAILY;
     Route: 048
  10. ADALIMUMAB [Suspect]
     Active Substance: ADALIMUMAB
     Indication: PRODUCT USED FOR UNKNOWN INDICATION
     Route: 058
  11. APO?ALENDRONATE [Suspect]
     Active Substance: ALENDRONATE SODIUM
     Indication: PRODUCT USED FOR UNKNOWN INDICATION
     Route: 065
  12. APO?RANITIDINE [Suspect]
     Active Substance: RANITIDINE
     Indication: PRODUCT USED FOR UNKNOWN INDICATION
     Dosage: 300 MILLIGRAM DAILY;
     Route: 048
  13. METHOTREXATE. [Suspect]
     Active Substance: METHOTREXATE
     Route: 058
  14. RATIO?OXYCOCET [Suspect]
     Active Substance: ACETAMINOPHEN\OXYCODONE HYDROCHLORIDE
     Indication: PRODUCT USED FOR UNKNOWN INDICATION
     Route: 065
  15. SEPTRA [Suspect]
     Active Substance: SULFAMETHOXAZOLE\TRIMETHOPRIM
     Indication: PRODUCT USED FOR UNKNOWN INDICATION
     Route: 065
  16. APO?AMITRIPTYLINE [Suspect]
     Active Substance: AMITRIPTYLINE HYDROCHLORIDE
     Indication: PRODUCT USED FOR UNKNOWN INDICATION
     Dosage: 75 MILLIGRAM DAILY;
     Route: 048
  17. AMITRIPTYLINE HYDROCHLORIDE. [Suspect]
     Active Substance: AMITRIPTYLINE HYDROCHLORIDE
     Indication: PRODUCT USED FOR UNKNOWN INDICATION
     Dosage: 75 MILLIGRAM DAILY;
     Route: 048
  18. RANITIDINE. [Suspect]
     Active Substance: RANITIDINE
     Indication: PRODUCT USED FOR UNKNOWN INDICATION
     Dosage: 300 MILLIGRAM DAILY;
     Route: 048
  19. DEPO?MEDROL [Suspect]
     Active Substance: METHYLPREDNISOLONE ACETATE
     Indication: RHEUMATOID ARTHRITIS
     Route: 014
  20. IMURAN [Suspect]
     Active Substance: AZATHIOPRINE
     Indication: PRODUCT USED FOR UNKNOWN INDICATION
     Dosage: 150 MG
  21. AZATHIOPRINE. [Suspect]
     Active Substance: AZATHIOPRINE
     Indication: PRODUCT USED FOR UNKNOWN INDICATION
     Route: 065
  22. PREGABALIN. [Suspect]
     Active Substance: PREGABALIN
     Indication: RHEUMATOID ARTHRITIS
     Dosage: 300 MILLIGRAM DAILY;
     Route: 048
  23. NAPROXEN. [Suspect]
     Active Substance: NAPROXEN
     Dosage: 1000 MILLIGRAM DAILY;
     Route: 048
  24. PREDNISONE. [Suspect]
     Active Substance: PREDNISONE
     Indication: RHEUMATOID ARTHRITIS
     Dosage: 15 MILLIGRAM DAILY;
  25. SULFASALAZINE. [Suspect]
     Active Substance: SULFASALAZINE
     Indication: RHEUMATOID ARTHRITIS
     Dosage: 1 GRAM DAILY;
     Route: 048
  26. ACETAMINOPHEN W/OXYCODONE [Suspect]
     Active Substance: ACETAMINOPHEN\OXYCODONE HYDROCHLORIDE
     Indication: PRODUCT USED FOR UNKNOWN INDICATION
     Route: 065
  27. APO?MELOXICAM [Suspect]
     Active Substance: MELOXICAM
     Indication: PRODUCT USED FOR UNKNOWN INDICATION
     Route: 065
  28. FOLIC ACID. [Concomitant]
     Active Substance: FOLIC ACID
  29. METHOTREXATE. [Suspect]
     Active Substance: METHOTREXATE
     Indication: RHEUMATOID ARTHRITIS
     Dosage: 20 MG ONCE WEEKLY
     Route: 048
  30. ENBREL [Suspect]
     Active Substance: ETANERCEPT
     Indication: RHEUMATOID ARTHRITIS
     Dosage: 50 MG ONCE WEEKLY
     Route: 058
  31. PANTOLOC [Suspect]
     Active Substance: PANTOPRAZOLE SODIUM
     Indication: PRODUCT USED FOR UNKNOWN INDICATION
     Route: 048
  32. HUMIRA [Suspect]
     Active Substance: ADALIMUMAB
     Indication: PRODUCT USED FOR UNKNOWN INDICATION
     Dosage: 40 MG
     Route: 058
  33. VIMOVO [Suspect]
     Active Substance: ESOMEPRAZOLE MAGNESIUM\NAPROXEN
     Indication: PRODUCT USED FOR UNKNOWN INDICATION
  34. METHYLPREDNISOLONE. [Suspect]
     Active Substance: METHYLPREDNISOLONE
     Indication: PRODUCT USED FOR UNKNOWN INDICATION
     Dosage: SUSPENSION FOR INFUSION
     Route: 014
  35. TOFACITINIB CITRATE [Suspect]
     Active Substance: TOFACITINIB CITRATE
     Indication: RHEUMATOID ARTHRITIS
     Dosage: 10 MILLIGRAM DAILY;
     Route: 048
  36. SULFAMETHOXAZOLE W/TRIMETHOPRIM [Suspect]
     Active Substance: SULFAMETHOXAZOLE\TRIMETHOPRIM
     Indication: PRODUCT USED FOR UNKNOWN INDICATION
     Route: 065
  37. ESOMEPRAZOLE MAGNESIUM W/NAPROXEN [Suspect]
     Active Substance: ESOMEPRAZOLE MAGNESIUM\NAPROXEN
     Indication: PRODUCT USED FOR UNKNOWN INDICATION
     Route: 065
  38. APO?NAPROXEN [Suspect]
     Active Substance: NAPROXEN
     Dosage: 500 MILLIGRAM DAILY;
     Route: 048
  39. APO?PREDNISONE [Suspect]
     Active Substance: PREDNISONE
     Indication: PRODUCT USED FOR UNKNOWN INDICATION
     Dosage: 15 MILLIGRAM DAILY;
     Route: 065

REACTIONS (51)
  - Rheumatoid nodule [Unknown]
  - Dry eye [Unknown]
  - Eye pain [Unknown]
  - Feeling jittery [Unknown]
  - Musculoskeletal pain [Unknown]
  - Pain [Unknown]
  - Pruritus [Unknown]
  - Visual impairment [Unknown]
  - Synovial fluid analysis [Unknown]
  - Scleritis [Unknown]
  - Drug effect decreased [Unknown]
  - Musculoskeletal stiffness [Unknown]
  - Pain in extremity [Unknown]
  - Peripheral swelling [Unknown]
  - Thrombosis [Unknown]
  - Ulcer [Unknown]
  - Pneumonia [Unknown]
  - Flank pain [Unknown]
  - Photophobia [Unknown]
  - Neoplasm malignant [Unknown]
  - Infection [Unknown]
  - Abdominal pain [Unknown]
  - Arthralgia [Unknown]
  - Nausea [Unknown]
  - Ocular hyperaemia [Unknown]
  - Synovial cyst [Unknown]
  - Tenderness [Unknown]
  - Antinuclear antibody positive [Unknown]
  - Cushingoid [Unknown]
  - Pleuritic pain [Unknown]
  - Conjunctivitis [Unknown]
  - Malaise [Unknown]
  - Rheumatoid arthritis [Unknown]
  - Interstitial lung disease [Unknown]
  - Lung disorder [Unknown]
  - Eye irritation [Unknown]
  - Bursitis [Unknown]
  - Dry mouth [Unknown]
  - Erythema [Unknown]
  - Impaired work ability [Unknown]
  - Joint effusion [Unknown]
  - Wheezing [Unknown]
  - Joint swelling [Unknown]
  - Rash [Unknown]
  - Atelectasis [Unknown]
  - Swelling face [Unknown]
  - Crepitations [Unknown]
  - Dyspnoea [Unknown]
  - Fibromyalgia [Unknown]
  - Nodule [Unknown]
  - Tenosynovitis stenosans [Unknown]
